FAERS Safety Report 7955131-6 (Version None)
Quarter: 2011Q4

REPORT INFORMATION
  Report Type: 
  Country: None (occurrence: None)
  Receive Date: 20111202
  Receipt Date: 20111123
  Transmission Date: 20120403
  Serious: Yes (Other)
  Sender: FDA-Public Use
  Company Number: US-JNJFOC-20111200452

PATIENT
  Sex: Female
  Weight: 54 kg

DRUGS (12)
  1. REMICADE [Suspect]
     Route: 042
     Dates: start: 20020419
  2. REMICADE [Suspect]
     Route: 042
     Dates: start: 20021216
  3. REMICADE [Suspect]
     Route: 042
     Dates: start: 20021126
  4. REMICADE [Suspect]
     Route: 042
     Dates: start: 20030902
  5. MERCAPTOPURINE [Concomitant]
     Indication: CROHN'S DISEASE
  6. REMICADE [Suspect]
     Indication: CROHN'S DISEASE
     Route: 042
     Dates: start: 19991116
  7. REMICADE [Suspect]
     Route: 042
     Dates: start: 20020620
  8. REMICADE [Suspect]
     Route: 042
     Dates: start: 20030123
  9. REMICADE [Suspect]
     Route: 042
     Dates: end: 20040309
  10. REMICADE [Suspect]
     Route: 042
     Dates: start: 20020521
  11. REMICADE [Suspect]
     Route: 042
     Dates: start: 20030407
  12. MESALAMINE [Concomitant]
     Indication: CROHN'S DISEASE

REACTIONS (2)
  - SQUAMOUS CELL CARCINOMA OF SKIN [None]
  - BASAL CELL CARCINOMA [None]
